FAERS Safety Report 21254168 (Version 2)
Quarter: 2023Q1

REPORT INFORMATION
  Report Type: Other
  Country: US (occurrence: None)
  Receive Date: 20220825
  Receipt Date: 20230221
  Transmission Date: 20230417
  Serious: Yes (Other)
  Sender: FDA-Public Use
  Company Number: US-ROCHE-2987049

PATIENT
  Age: 49 Year
  Sex: Female
  Weight: 61.744 kg

DRUGS (2)
  1. OCREVUS [Suspect]
     Active Substance: OCRELIZUMAB
     Indication: Multiple sclerosis
     Dosage: ANTICIPATED DOT: NOV/2021
     Route: 042
     Dates: start: 2021
  2. BACLOFEN [Concomitant]
     Active Substance: BACLOFEN
     Route: 048

REACTIONS (10)
  - Diarrhoea [Recovered/Resolved]
  - Somnolence [Unknown]
  - Pain [Unknown]
  - Cough [Unknown]
  - Pyrexia [Unknown]
  - Headache [Unknown]
  - Illness [Unknown]
  - Fatigue [Recovered/Resolved]
  - Demyelination [Unknown]
  - Multiple sclerosis [Unknown]

NARRATIVE: CASE EVENT DATE: 20211201
